FAERS Safety Report 4340004-0 (Version None)
Quarter: 2004Q2

REPORT INFORMATION
  Report Type: 
  Country: None (occurrence: None)
  Receive Date: 20040416
  Receipt Date: 20040123
  Transmission Date: 20050107
  Serious: Yes (Hospitalization, Other)
  Sender: FDA-Public Use
  Company Number: US-MERCK-0401USA01980

PATIENT
  Age: 73 Year
  Sex: Male
  Weight: 109 kg

DRUGS (11)
  1. TYLENOL W/ CODEINE [Concomitant]
     Route: 065
  2. ASPIRIN [Concomitant]
     Route: 065
  3. ATENOLOL [Concomitant]
     Route: 065
  4. TUMS [Concomitant]
     Route: 065
  5. CARDURA [Concomitant]
     Route: 048
     Dates: start: 20000306
  6. PREVACID [Concomitant]
     Route: 065
  7. ZESTRIL [Concomitant]
     Route: 048
  8. ADALAT [Concomitant]
     Route: 048
  9. PRILOSEC [Concomitant]
     Route: 065
  10. ACIPHEX [Concomitant]
     Route: 048
     Dates: start: 20000722
  11. VIOXX [Suspect]
     Indication: OSTEOARTHRITIS
     Route: 048
     Dates: start: 20000722, end: 20000901

REACTIONS (29)
  - BARRETT'S OESOPHAGUS [None]
  - BLOOD CHOLESTEROL ABNORMAL [None]
  - CARDIAC FAILURE CONGESTIVE [None]
  - CHOLECYSTITIS [None]
  - CHOLELITHIASIS [None]
  - CHRONIC OBSTRUCTIVE AIRWAYS DISEASE [None]
  - COLON ADENOMA [None]
  - COLONIC POLYP [None]
  - CORONARY ARTERY DISEASE [None]
  - DEPRESSION [None]
  - DIABETES MELLITUS NON-INSULIN-DEPENDENT [None]
  - DIVERTICULUM [None]
  - DIVERTICULUM INTESTINAL [None]
  - DYSPLASIA [None]
  - GASTRITIS [None]
  - HAEMORRHOIDAL HAEMORRHAGE [None]
  - HAEMORRHOIDS [None]
  - HEPATIC STEATOSIS [None]
  - HIATUS HERNIA [None]
  - HYPOKALAEMIA [None]
  - LIPIDS ABNORMAL [None]
  - LOBAR PNEUMONIA [None]
  - MYOCARDIAL INFARCTION [None]
  - OEDEMA PERIPHERAL [None]
  - OESOPHAGEAL ULCER [None]
  - PROSTATE CANCER [None]
  - PULMONARY MASS [None]
  - ULCER HAEMORRHAGE [None]
  - UPPER GASTROINTESTINAL HAEMORRHAGE [None]
